FAERS Safety Report 9454467 (Version 1)
Quarter: 2013Q3

REPORT INFORMATION
  Report Type: Spontaneous
  Country: IL (occurrence: IL)
  Receive Date: 20130812
  Receipt Date: 20130812
  Transmission Date: 20140515
  Serious: Yes (Hospitalization)
  Sender: FDA-Public Use
  Company Number: IL-PERRIGO-13IL007989

PATIENT
  Age: 13 Year
  Sex: 0
  Weight: 46.4 kg

DRUGS (2)
  1. NAPROXEN RX 250 MG 121 [Suspect]
     Indication: DYSMENORRHOEA
     Dosage: 500MG
     Route: 048
  2. DICLOFENAC [Suspect]
     Indication: DYSMENORRHOEA
     Dosage: 150MG
     Route: 048

REACTIONS (4)
  - Renal failure acute [Recovered/Resolved]
  - Vomiting [Recovered/Resolved]
  - Abdominal pain [Recovered/Resolved]
  - Fluid intake reduced [Recovered/Resolved]
